FAERS Safety Report 18165789 (Version 1)
Quarter: 2020Q3

REPORT INFORMATION
  Report Type: Spontaneous
  Country: US (occurrence: US)
  Receive Date: 20200818
  Receipt Date: 20200818
  Transmission Date: 20201103
  Serious: Yes (Hospitalization)
  Sender: FDA-Public Use
  Company Number: US-OTSUKA-2018_026188

PATIENT
  Sex: Female

DRUGS (4)
  1. ABILIFY [Suspect]
     Active Substance: ARIPIPRAZOLE
     Indication: DEPRESSION
  2. ABILIFY [Suspect]
     Active Substance: ARIPIPRAZOLE
     Indication: POST-TRAUMATIC STRESS DISORDER
  3. ABILIFY [Suspect]
     Active Substance: ARIPIPRAZOLE
     Indication: BIPOLAR DISORDER
     Dosage: UNK
     Route: 065
     Dates: start: 2006, end: 2016
  4. ARIPIPRAZOLE. [Concomitant]
     Active Substance: ARIPIPRAZOLE
     Indication: PRODUCT USED FOR UNKNOWN INDICATION
     Dosage: UNK
     Route: 065

REACTIONS (15)
  - Compulsive hoarding [Recovered/Resolved]
  - Economic problem [Unknown]
  - Psychotic disorder [Unknown]
  - Compulsive sexual behaviour [Recovered/Resolved]
  - Obsessive-compulsive disorder [Recovered/Resolved]
  - Gambling disorder [Recovered/Resolved]
  - Homeless [Unknown]
  - Product use in unapproved indication [Unknown]
  - Theft [Recovered/Resolved]
  - Eating disorder [Recovered/Resolved]
  - Binge eating [Recovered/Resolved]
  - Loss of employment [Unknown]
  - Shoplifting [Recovered/Resolved]
  - Compulsive shopping [Recovered/Resolved]
  - Hypersexuality [Recovered/Resolved]
